FAERS Safety Report 7927924-2 (Version None)
Quarter: 2011Q4

REPORT INFORMATION
  Report Type: 
  Country: None (occurrence: None)
  Receive Date: 20111118
  Receipt Date: 20111111
  Transmission Date: 20120403
  Serious: Yes (Hospitalization, Other)
  Sender: FDA-Public Use
  Company Number: JP-CEPHALON-2011003683

PATIENT
  Sex: Male
  Weight: 70 kg

DRUGS (14)
  1. SULFAMETHOXAZOLE AND TRIMETHOPRIM [Concomitant]
  2. CHLORPHENIRAMINE MALEATE [Concomitant]
     Dates: start: 20110125, end: 20110328
  3. ALLYLESTRENOL [Concomitant]
  4. AZASETRON HYDROCHLORIDE [Concomitant]
     Dates: start: 20110126, end: 20110329
  5. FLUCONAZOLE [Concomitant]
     Dates: end: 20110218
  6. METFORMIN HCL [Concomitant]
     Dates: end: 20110208
  7. IBUPROFEN [Concomitant]
     Dates: start: 20110125, end: 20110328
  8. BENDAMUSTINE HCL [Suspect]
     Route: 042
     Dates: start: 20110222, end: 20110223
  9. RITUXIMAB [Concomitant]
     Indication: MANTLE CELL LYMPHOMA
     Dates: start: 20110125, end: 20110328
  10. ITRACONAZOLE [Concomitant]
     Dates: start: 20110219
  11. BENDAMUSTINE HCL [Suspect]
     Route: 042
     Dates: start: 20110328, end: 20110329
  12. BENDAMUSTINE HCL [Suspect]
     Indication: MANTLE CELL LYMPHOMA
     Route: 042
     Dates: start: 20110126, end: 20110127
  13. PIOGLITAZONE HYDROCHLORIDE [Concomitant]
  14. ACYCLOVIR [Concomitant]
     Dates: start: 20110208

REACTIONS (7)
  - CYTOMEGALOVIRUS CHORIORETINITIS [None]
  - FEBRILE NEUTROPENIA [None]
  - NEUTROPHIL COUNT DECREASED [None]
  - PHLEBITIS [None]
  - NAUSEA [None]
  - LYMPHOCYTE COUNT DECREASED [None]
  - DECREASED APPETITE [None]
